FAERS Safety Report 23629028 (Version 1)
Quarter: 2024Q1

REPORT INFORMATION
  Report Type: Spontaneous
  Country: US (occurrence: US)
  Receive Date: 20240313
  Receipt Date: 20240313
  Transmission Date: 20240410
  Serious: Yes (Hospitalization, Other)
  Sender: FDA-Public Use
  Company Number: US-FreseniusKabi-FK202403951

PATIENT
  Age: 47 Year
  Sex: Male

DRUGS (1)
  1. VALPROATE [Suspect]
     Active Substance: VALPROIC ACID
     Indication: Product used for unknown indication

REACTIONS (4)
  - Hyperammonaemic encephalopathy [Recovered/Resolved]
  - Respiratory failure [Unknown]
  - Hypovolaemic shock [Recovering/Resolving]
  - Overdose [Unknown]
